FAERS Safety Report 4492930-X (Version None)
Quarter: 2004Q4

REPORT INFORMATION
  Report Type: 
  Country: None (occurrence: None)
  Receive Date: 20041104
  Receipt Date: 20041027
  Transmission Date: 20050328
  Serious: Yes (Death, Hospitalization)
  Sender: FDA-Public Use
  Company Number: FR-MERCK-0411FRA00001

PATIENT
  Age: 75 Year
  Sex: Female
  Weight: 88 kg

DRUGS (9)
  1. VIOXX [Suspect]
     Indication: ARTHRALGIA
     Route: 048
     Dates: start: 20040913, end: 20040917
  2. FLUINDIONE [Suspect]
     Indication: THROMBOSIS PROPHYLAXIS
     Route: 048
     Dates: end: 20040917
  3. PRAZOSIN [Concomitant]
     Indication: HYPERTENSION
     Route: 048
     Dates: end: 20040917
  4. ENALAPRIL MALEATE [Concomitant]
     Indication: HYPERTENSION
     Route: 065
     Dates: end: 20040917
  5. AMIODARONE [Concomitant]
     Indication: ATRIAL FIBRILLATION
     Route: 048
     Dates: end: 20040917
  6. DIGOXIN [Concomitant]
     Indication: ATRIAL FIBRILLATION
     Route: 048
     Dates: end: 20040917
  7. INDAPAMIDE [Concomitant]
     Indication: HYPERTENSION
     Route: 048
     Dates: end: 20040917
  8. INSULIN HUMAN, ISOPHANE [Concomitant]
     Indication: DIABETES MELLITUS
     Route: 058
  9. FENOFIBRATE [Concomitant]
     Indication: DYSLIPIDAEMIA
     Route: 048
     Dates: end: 20040917

REACTIONS (7)
  - AREFLEXIA [None]
  - CEREBRAL HAEMORRHAGE [None]
  - DRUG INTERACTION [None]
  - ELECTROENCEPHALOGRAM ABNORMAL [None]
  - HAEMOGLOBIN DECREASED [None]
  - HEART RATE DECREASED [None]
  - HEART RATE IRREGULAR [None]
